FAERS Safety Report 14617790 (Version 1)
Quarter: 2018Q1

REPORT INFORMATION
  Report Type: Spontaneous
  Country: IL (occurrence: IL)
  Receive Date: 20180309
  Receipt Date: 20180309
  Transmission Date: 20180509
  Serious: Yes (Death)
  Sender: FDA-Public Use
  Company Number: IL-ASTELLAS-2018US011600

PATIENT
  Age: 42 Year
  Sex: Female

DRUGS (3)
  1. MYCAMINE [Suspect]
     Active Substance: MICAFUNGIN SODIUM
     Indication: SINUSITIS FUNGAL
     Route: 042
  2. AMBISOME [Concomitant]
     Active Substance: AMPHOTERICIN B
     Indication: SINUSITIS FUNGAL
     Dosage: UNK UNK, UNKNOWN FREQ.
     Route: 065
  3. ERAXIS [Concomitant]
     Active Substance: ANIDULAFUNGIN
     Indication: SINUSITIS FUNGAL
     Dosage: UNK UNK, UNKNOWN FREQ.
     Route: 065

REACTIONS (1)
  - Death [Fatal]

NARRATIVE: CASE EVENT DATE: 20180305
